FAERS Safety Report 7473844-X (Version None)
Quarter: 2011Q2

REPORT INFORMATION
  Report Type: 
  Country: None (occurrence: None)
  Receive Date: 20110503
  Receipt Date: 20110428
  Transmission Date: 20111010
  Serious: Yes (Death)
  Sender: FDA-Public Use
  Company Number: 2011SP018894

PATIENT
  Age: 17 Year
  Sex: Female
  Weight: 55 kg

DRUGS (3)
  1. MICROGYNON /00022701/ [Concomitant]
  2. NEXPLANON (ETONOGESTREL / 01502301/) [Suspect]
     Indication: CONTRACEPTION
     Dosage: 68 MG, SBDE
     Route: 059
     Dates: start: 20110119
  3. LIDOCAINE [Concomitant]

REACTIONS (3)
  - ALCOHOL USE [None]
  - PARENT-CHILD PROBLEM [None]
  - COMPLETED SUICIDE [None]
